FAERS Safety Report 7934845-8 (Version None)
Quarter: 2011Q4

REPORT INFORMATION
  Report Type: 
  Country: None (occurrence: None)
  Receive Date: 20111122
  Receipt Date: 20111114
  Transmission Date: 20120403
  Serious: Yes (Other)
  Sender: FDA-Public Use
  Company Number: DE-B.I. PHARMACEUTICALS,INC./RIDGEFIELD-2011-DE-06377DE

PATIENT
  Sex: Female
  Weight: 91 kg

DRUGS (2)
  1. PRAMIPEXOLE DIHYDROCHLORIDE [Suspect]
     Indication: PARKINSON'S DISEASE
     Dosage: 4.3 MG
     Route: 048
     Dates: start: 20090101, end: 20110501
  2. AMANTADINE HCL [Suspect]
     Indication: PARKINSON'S DISEASE
     Dosage: 100 MG
     Route: 048
     Dates: start: 20110101, end: 20110501

REACTIONS (3)
  - OEDEMA PERIPHERAL [None]
  - ALOPECIA [None]
  - DEPRESSION [None]
